FAERS Safety Report 5025025-7 (Version None)
Quarter: 2006Q2

REPORT INFORMATION
  Report Type: 
  Country: None (occurrence: None)
  Receive Date: 20060607
  Receipt Date: 20060519
  Transmission Date: 20061013
  Serious: Yes (Hospitalization, Other)
  Sender: FDA-Public Use
  Company Number: US200605001753

PATIENT
  Age: 69 Year
  Sex: Female
  Weight: 62 kg

DRUGS (16)
  1. FORTEO [Suspect]
     Indication: OSTEOPOROSIS
     Dosage: ENTIRE PEN
     Dates: end: 20060408
  2. FORTEO [Suspect]
     Indication: OSTEOPOROSIS
     Dosage: ENTIRE PEN
     Dates: start: 20060409, end: 20060409
  3. FORTEO [Concomitant]
  4. CREON [Concomitant]
  5. MAGNESIUM OXIDE (MAGNESIUM OXIDE) [Concomitant]
  6. ALOPRAM (ESCITALOPRAM) [Concomitant]
  7. FAMOTIDINE [Concomitant]
  8. HEPARIN SODIUM [Concomitant]
  9. VICODIN [Concomitant]
  10. HYDROCORTISONE [Concomitant]
  11. INSULIN HUMAN (INSULIN HUMAN) [Concomitant]
  12. METOPROLOL TARTRATE [Concomitant]
  13. MORPHINE SULFATE (MORPHINE SULFATE) VIAL [Concomitant]
  14. PANCRELIPASE (PANCRELIPASE) TABLET [Concomitant]
  15. PANTOPRAZOLE SODIUM [Concomitant]
  16. POTASSIUM CHLORIDE W/SODIUM CHLORIDE (POTASSIUM CHLORIDE, SODIUM CHLOR [Concomitant]

REACTIONS (9)
  - ACCIDENTAL OVERDOSE [None]
  - ADRENAL INSUFFICIENCY [None]
  - BLOOD PHOSPHORUS DECREASED [None]
  - DIABETES MELLITUS INSULIN-DEPENDENT [None]
  - HYPOTENSION [None]
  - MEDICATION ERROR [None]
  - NEOPLASM RECURRENCE [None]
  - PANCREATIC MASS [None]
  - PHARMACEUTICAL PRODUCT COMPLAINT [None]
